FAERS Safety Report 9246158 (Version 1)
Quarter: 2013Q2

REPORT INFORMATION
  Report Type: Spontaneous
  Country: CA (occurrence: CA)
  Receive Date: 20130422
  Receipt Date: 20130422
  Transmission Date: 20140414
  Serious: Yes (Hospitalization, Other)
  Sender: FDA-Public Use
  Company Number: CA-PFIZER INC-2013073161

PATIENT
  Age: 59 Year
  Sex: Female
  Weight: 86 kg

DRUGS (4)
  1. CYKLOKAPRON [Suspect]
     Indication: PROPHYLAXIS
     Dosage: 1700 MG, SINGLE
     Route: 042
     Dates: start: 20121018, end: 20121018
  2. HYDROCHLOROTHIAZIDE [Concomitant]
     Indication: HYPERTENSION
     Dosage: 0.5 DF, 1X/DAY
     Route: 048
  3. PALAFER [Concomitant]
     Indication: HAEMOGLOBIN
     Dosage: 300 MG, 2X/DAY
     Route: 048
  4. REACTINE [Concomitant]
     Indication: HYPERSENSITIVITY
     Dosage: 10 MG, 1X/DAY

REACTIONS (3)
  - Deep vein thrombosis [Recovered/Resolved]
  - Haemoptysis [Recovered/Resolved]
  - Pulmonary embolism [Recovered/Resolved]
